FAERS Safety Report 8129796-2 (Version None)
Quarter: 2012Q1

REPORT INFORMATION
  Report Type: 
  Country: None (occurrence: None)
  Receive Date: 20120210
  Receipt Date: 20120210
  Transmission Date: 20120608
  Serious: Yes (Disabling)
  Sender: FDA-Public Use
  Company Number: None

PATIENT
  Age: 57 Year
  Sex: Female
  Weight: 73.028 kg

DRUGS (2)
  1. CAREONE REGULAR STRENGTH FAST ACTING LIQUID ANTACID [Suspect]
     Indication: FLATULENCE
     Dates: start: 20111002, end: 20120119
  2. CAREONE REGULAR STRENGTH FAST ACTING LIQUID ANTACID [Suspect]
     Indication: GASTROOESOPHAGEAL REFLUX DISEASE
     Dates: start: 20111002, end: 20120119

REACTIONS (10)
  - CONSTIPATION [None]
  - RENAL IMPAIRMENT [None]
  - CONFUSIONAL STATE [None]
  - HERNIA [None]
  - ABDOMINAL DISTENSION [None]
  - FLATULENCE [None]
  - FLUID RETENTION [None]
  - TOXICITY TO VARIOUS AGENTS [None]
  - NEPHROPATHY TOXIC [None]
  - MEMORY IMPAIRMENT [None]
